FAERS Safety Report 7205462-2 (Version None)
Quarter: 2010Q4

REPORT INFORMATION
  Report Type: 
  Country: None (occurrence: None)
  Receive Date: 20101231
  Receipt Date: 20101228
  Transmission Date: 20110411
  Serious: Yes (Death)
  Sender: FDA-Public Use
  Company Number: PHHY2010US88603

PATIENT
  Sex: Female
  Weight: 50 kg

DRUGS (7)
  1. EXJADE [Suspect]
     Indication: MYELOID LEUKAEMIA
     Dosage: 1000 MG DAILY
     Route: 048
     Dates: start: 20101011
  2. PROCHLORPERAZINE [Concomitant]
  3. LISINOPRIL [Concomitant]
  4. SIMVASTATIN [Concomitant]
  5. LANTUS [Concomitant]
  6. ASPIRIN [Concomitant]
  7. NOVOLIN R [Concomitant]

REACTIONS (1)
  - DEATH [None]
